FAERS Safety Report 4357595-6 (Version None)
Quarter: 2004Q2

REPORT INFORMATION
  Report Type: 
  Country: None (occurrence: None)
  Receive Date: 20040512
  Receipt Date: 20040512
  Transmission Date: 20050107
  Serious: No
  Sender: FDA-Public Use
  Company Number: None

PATIENT
  Sex: Male
  Weight: 2.8 kg

DRUGS (7)
  1. ACYCLOVIR SODIUM [Suspect]
     Indication: HERPES SIMPLEX
     Dosage: 55 MG EVERY 8 HO IV
     Route: 042
     Dates: start: 20040430, end: 20040430
  2. SODIUM CHLORIDE 0.9% [Suspect]
  3. AMPICILLIN [Concomitant]
  4. CEFOTAXIME [Concomitant]
  5. HYDROCORTISONE [Concomitant]
  6. LANSOPRAZOLE [Concomitant]
  7. METOCLOPRAMIDE [Concomitant]

REACTIONS (4)
  - BLISTER [None]
  - INFUSION RELATED REACTION [None]
  - INFUSION SITE BRUISING [None]
  - PALLOR [None]
